FAERS Safety Report 18009934 (Version 1)
Quarter: 2020Q3

REPORT INFORMATION
  Report Type: Spontaneous
  Country: US (occurrence: US)
  Receive Date: 20200710
  Receipt Date: 20200710
  Transmission Date: 20201103
  Serious: Yes (Other)
  Sender: FDA-Public Use
  Company Number: US-SUNOVION-2020SUN002014

PATIENT
  Age: 41 Year
  Sex: Male

DRUGS (2)
  1. APTIOM [Suspect]
     Active Substance: ESLICARBAZEPINE ACETATE
     Indication: FOCAL DYSCOGNITIVE SEIZURES
     Dosage: 1200 MG
     Route: 048
  2. APTIOM [Suspect]
     Active Substance: ESLICARBAZEPINE ACETATE
     Indication: EPILEPSY

REACTIONS (2)
  - Brain injury [Unknown]
  - Memory impairment [Unknown]

NARRATIVE: CASE EVENT DATE: 201910
